FAERS Safety Report 9858301 (Version 3)
Quarter: 2014Q1

REPORT INFORMATION
  Report Type: Spontaneous
  Country: US (occurrence: US)
  Receive Date: 20140131
  Receipt Date: 20140221
  Transmission Date: 20141002
  Serious: Yes (Hospitalization)
  Sender: FDA-Public Use
  Company Number: US-BEH-2014040286

PATIENT
  Age: 73 Year
  Sex: Male
  Weight: 95 kg

DRUGS (14)
  1. PRIVIGEN [Suspect]
     Dosage: 40 GM VIAL; INFUSE OVER 2.5-6 HOURS; PATEINT RECEIVED 40 G DAILY ON FIVE DAYS PER MONTH
     Route: 042
  2. PRIVIGEN [Suspect]
     Indication: POLYMYOSITIS
     Dosage: 40 GM VIAL; 40 GM DAILY X 5 DAYS
     Route: 042
  3. ACETAMINOPHEN [Concomitant]
  4. DIPHENHYDRAMINE [Concomitant]
  5. HEPARIN [Concomitant]
     Dosage: 10 UNITS/ML
  6. LIDOCAINE PRILOCAINE [Concomitant]
  7. SODIUM CHLORIDE [Concomitant]
  8. EPIPEN [Concomitant]
  9. METHOTREXATE [Concomitant]
  10. PANTOPRAZOLE [Concomitant]
  11. PREDNISONE [Concomitant]
  12. ALENDRONATE [Concomitant]
  13. FOLIC ACID [Concomitant]
  14. ASPIRIN [Concomitant]
     Dosage: EC
     Route: 048

REACTIONS (2)
  - Myocardial infarction [Unknown]
  - Thrombosis [Unknown]
